FAERS Safety Report 5759590-9 (Version None)
Quarter: 2008Q2

REPORT INFORMATION
  Report Type: 
  Country: None (occurrence: None)
  Receive Date: 20080605
  Receipt Date: 20080530
  Transmission Date: 20081010
  Serious: Yes (Other)
  Sender: FDA-Public Use
  Company Number: CA-ASTRAZENECA-2008UW11087

PATIENT
  Age: 65 Year
  Sex: Male

DRUGS (1)
  1. PULMICORT [Suspect]
     Dosage: 200 UG ONE OR TWO PUFFS A DAY AS NEEDED
     Route: 055

REACTIONS (3)
  - CHEST DISCOMFORT [None]
  - DYSPNOEA [None]
  - WHEEZING [None]
